FAERS Safety Report 4445008-5 (Version None)
Quarter: 2004Q3

REPORT INFORMATION
  Report Type: 
  Country: None (occurrence: None)
  Receive Date: 20040909
  Receipt Date: 20040827
  Transmission Date: 20050211
  Serious: Yes (Other)
  Sender: FDA-Public Use
  Company Number: PHEH2004US09330

PATIENT
  Age: 57 Year
  Sex: Female

DRUGS (15)
  1. ZOMETA [Suspect]
     Indication: BREAST CANCER METASTATIC
     Dosage: 4 MG, UNK
     Route: 042
     Dates: start: 20000501, end: 20040528
  2. LOPRESSOR [Concomitant]
     Dosage: 200 MG, UNK
  3. SYNTHROID [Concomitant]
     Dosage: 175 MCG.
  4. CALCIUM [Concomitant]
  5. ROCALTROL [Concomitant]
     Dosage: .25 MG, UNK
  6. CLONIDINE HCL [Concomitant]
  7. AVALIDE [Concomitant]
  8. NEUPOGEN [Concomitant]
     Dosage: PRN
  9. EPOGEN [Concomitant]
     Indication: ANAEMIA
     Dosage: 40,000 (UNSPECIFIED) WEEKLY
  10. CYTOXAN [Concomitant]
     Indication: CARCINOMA
     Dates: start: 20040301, end: 20040501
  11. METHOTREXATE [Concomitant]
     Indication: CARCINOMA
     Dates: start: 20040301, end: 20040501
  12. FLUOROURACIL [Concomitant]
     Indication: CARCINOMA
     Dates: start: 20040301, end: 20040501
  13. DECADRON [Concomitant]
  14. ZOFRAN [Concomitant]
  15. CHEMOTHERAPEUTICS,OTHER [Concomitant]

REACTIONS (5)
  - ABSCESS [None]
  - INFECTION [None]
  - OSTEOMYELITIS [None]
  - SURGERY [None]
  - TOOTH EXTRACTION [None]
